FAERS Safety Report 19598816 (Version 2)
Quarter: 2021Q3

REPORT INFORMATION
  Report Type: Spontaneous
  Country: DE (occurrence: DE)
  Receive Date: 20210722
  Receipt Date: 20210809
  Transmission Date: 20211014
  Serious: Yes (Other)
  Sender: FDA-Public Use
  Company Number: DE-UCBSA-2021033918

PATIENT

DRUGS (4)
  1. PERAMPANEL [Concomitant]
     Active Substance: PERAMPANEL
     Indication: PARTIAL SEIZURES
     Dosage: 14 MILLIGRAM, AT BEDTIME
     Route: 048
  2. LACOSAMIDE. [Suspect]
     Active Substance: LACOSAMIDE
     Indication: PARTIAL SEIZURES
     Dosage: UNKNOWN DOSE
  3. LEVETIRACETAM. [Interacting]
     Active Substance: LEVETIRACETAM
     Indication: PARTIAL SEIZURES
     Dosage: UNKNOWN DOSE
  4. PHENOBARBITAL. [Interacting]
     Active Substance: PHENOBARBITAL
     Indication: PARTIAL SEIZURES
     Dosage: UNKNOWN DOSE

REACTIONS (8)
  - Multiple-drug resistance [Unknown]
  - Depression [Unknown]
  - Hepatic enzyme increased [Unknown]
  - Dizziness [Unknown]
  - Psychotic disorder [Unknown]
  - Drug clearance increased [Unknown]
  - Drug interaction [Unknown]
  - Aggression [Unknown]
